FAERS Safety Report 10543521 (Version 1)
Quarter: 2014Q4

REPORT INFORMATION
  Report Type: Spontaneous
  Country: IT (occurrence: IT)
  Receive Date: 20141027
  Receipt Date: 20141027
  Transmission Date: 20150529
  Serious: Yes (Hospitalization, Other)
  Sender: FDA-Public Use
  Company Number: IT-WATSON-2014-22504

PATIENT
  Age: 17 Year
  Sex: Female

DRUGS (3)
  1. BACLOFEN (UNKNOWN) [Suspect]
     Active Substance: BACLOFEN
     Indication: DRUG DIVERSION
  2. BACLOFEN (UNKNOWN) [Suspect]
     Active Substance: BACLOFEN
     Indication: INTENTIONAL OVERDOSE
     Dosage: 625 MG, UNKNOWN
     Route: 048
  3. BACLOFEN (UNKNOWN) [Suspect]
     Active Substance: BACLOFEN
     Indication: DYSTONIA

REACTIONS (13)
  - Vomiting [Recovered/Resolved]
  - Headache [Recovered/Resolved]
  - Amnesia [Recovered/Resolved]
  - Substance use [Unknown]
  - Miosis [Recovered/Resolved]
  - Confusional state [Recovered/Resolved]
  - Stereotypy [Recovered/Resolved]
  - Electroencephalogram abnormal [Recovered/Resolved]
  - Coma [Recovered/Resolved]
  - Agitation [Recovered/Resolved]
  - Areflexia [Recovered/Resolved]
  - Intentional overdose [Recovered/Resolved]
  - Blood bilirubin increased [Recovered/Resolved]
